FAERS Safety Report 8390738-6 (Version None)
Quarter: 2012Q1

REPORT INFORMATION
  Report Type: 
  Country: None (occurrence: None)
  Receive Date: 20120323
  Receipt Date: 20111006
  Transmission Date: 20120608
  Serious: Yes (Other)
  Sender: FDA-Public Use
  Company Number: 163-21880-11031149

PATIENT
  Age: 76 Year
  Sex: Male
  Weight: 82.1011 kg

DRUGS (12)
  1. TIMOPTIC (TIMOLOL MALEATE) (SOLUTION) [Concomitant]
  2. ALPHAGAN (BRIMONIDINE TARTRATE) (SOLUTION) [Concomitant]
  3. REVLIMID [Suspect]
     Indication: MULTIPLE MYELOMA
     Dosage: 25 MG, X 21 DAYS, PO
     Route: 048
     Dates: start: 20080201, end: 20111001
  4. COUMADIN [Concomitant]
  5. CYTOXAN [Concomitant]
  6. COREG [Concomitant]
  7. DIOVAN [Concomitant]
  8. WARFARIN SODIUM [Concomitant]
  9. LUMIGAN (BIMATOPROST) (SOLUTION) [Concomitant]
  10. DEXAMETHASONE [Concomitant]
  11. COMBIGAN (COMBIGAN) [Concomitant]
  12. CYCLOPHOSPH [Concomitant]

REACTIONS (1)
  - NEUROPATHY PERIPHERAL [None]
